FAERS Safety Report 9586245 (Version 1)
Quarter: 2013Q3

REPORT INFORMATION
  Report Type: Spontaneous
  Country: US (occurrence: None)
  Receive Date: 20130926
  Receipt Date: 20130926
  Transmission Date: 20140515
  Serious: Yes (Hospitalization)
  Sender: FDA-Public Use
  Company Number: 2012-01805

PATIENT
  Age: 47 Year
  Sex: Female

DRUGS (3)
  1. VALPROIC ACID (UNKNOWN) [Suspect]
     Indication: PRODUCT USED FOR UNKNOWN INDICATION
  2. CALCIUM ACETATE [Concomitant]
  3. CINACALCET [Concomitant]

REACTIONS (3)
  - Toxicity to various agents [None]
  - Asthenia [None]
  - Encephalopathy [None]
